FAERS Safety Report 15369643 (Version 1)
Quarter: 2018Q3

REPORT INFORMATION
  Report Type: Spontaneous
  Country: US (occurrence: US)
  Receive Date: 20180911
  Receipt Date: 20180911
  Transmission Date: 20181010
  Serious: No
  Sender: FDA-Public Use
  Company Number: US-BIOGEN-2018BI00630098

PATIENT
  Age: 19 Year
  Sex: Male

DRUGS (1)
  1. SPINRAZA [Suspect]
     Active Substance: NUSINERSEN
     Indication: SPINAL MUSCULAR ATROPHY

REACTIONS (5)
  - Urine ketone body present [Unknown]
  - White blood cells urine positive [Unknown]
  - Protein urine present [Unknown]
  - Bacterial test positive [Unknown]
  - Blood urine present [Unknown]

NARRATIVE: CASE EVENT DATE: 20180906
